FAERS Safety Report 9842072 (Version 1)
Quarter: 2014Q1

REPORT INFORMATION
  Report Type: Spontaneous
  Country: JP (occurrence: JP)
  Receive Date: 20140124
  Receipt Date: 20140124
  Transmission Date: 20141002
  Serious: Yes (Other)
  Sender: FDA-Public Use
  Company Number: JP-ASTRAZENECA-2014SE04041

PATIENT
  Age: 70 Year
  Sex: Female

DRUGS (3)
  1. DIPRIVAN [Suspect]
     Route: 042
  2. MIRTAZAPINE [Suspect]
  3. PHENYTOIN [Suspect]

REACTIONS (1)
  - Hepatic function abnormal [Recovering/Resolving]
